FAERS Safety Report 4340594-8 (Version None)
Quarter: 2004Q2

REPORT INFORMATION
  Report Type: 
  Country: None (occurrence: None)
  Receive Date: 20040416
  Receipt Date: 20040416
  Transmission Date: 20050107
  Serious: Yes (Life-Threatening)
  Sender: FDA-Public Use
  Company Number: None

PATIENT
  Age: 83 Year
  Sex: Female
  Weight: 65 kg

DRUGS (11)
  1. LEVOFLOXACIN [Suspect]
     Dosage: 250 MG PO DAILY
     Route: 048
     Dates: start: 20040410, end: 20040413
  2. LIPITOR [Concomitant]
  3. PLAVIX [Concomitant]
  4. PEPCID [Concomitant]
  5. IRON [Concomitant]
  6. METOPROLOL [Concomitant]
  7. MONTELEUKAST [Concomitant]
  8. POTASSIUM [Concomitant]
  9. LASIX [Concomitant]
  10. GLYBURIDE [Concomitant]
  11. MAGNESIUM [Concomitant]

REACTIONS (1)
  - TORSADE DE POINTES [None]
